FAERS Safety Report 22252402 (Version 10)
Quarter: 2024Q1

REPORT INFORMATION
  Report Type: Report from Study
  Country: US (occurrence: US)
  Receive Date: 20230426
  Receipt Date: 20240119
  Transmission Date: 20240409
  Serious: Yes (Disabling)
  Sender: FDA-Public Use
  Company Number: US-002147023-NVSC2023US093600

PATIENT
  Sex: Female

DRUGS (3)
  1. KESIMPTA [Suspect]
     Active Substance: OFATUMUMAB
     Indication: Multiple sclerosis
     Dosage: 20 MG/ 0.4 ML, QW (INJECT 20MG ON WEEK 0,1,2 THEN MONTHLY THEREAFTER BEGINNING ON WEEK 4)
     Route: 058
     Dates: start: 20230416
  2. KESIMPTA [Suspect]
     Active Substance: OFATUMUMAB
     Dosage: 20 MG/ 0.4 ML, QW (INJECT 20MG ON WEEK 0,1,2 THEN MONTHLY THEREAFTER BEGINNING ON WEEK 4)
     Route: 058
  3. KESIMPTA [Suspect]
     Active Substance: OFATUMUMAB
     Dosage: 20 MG/ 0.4 ML, QW (INJECT 20MG ON WEEK 0,1,2 THEN MONTHLY THEREAFTER BEGINNING ON WEEK 4)
     Route: 058
     Dates: start: 20230618

REACTIONS (11)
  - Illness [Unknown]
  - Muscle tightness [Unknown]
  - Neck pain [Unknown]
  - Fatigue [Unknown]
  - Headache [Unknown]
  - Pyrexia [Recovered/Resolved]
  - Chills [Recovered/Resolved]
  - Pain [Recovered/Resolved]
  - Fatigue [Recovered/Resolved]
  - Nasopharyngitis [Unknown]
  - Injection site bruising [Recovered/Resolved]
